FAERS Safety Report 5598525-9 (Version None)
Quarter: 2008Q1

REPORT INFORMATION
  Report Type: 
  Country: None (occurrence: None)
  Receive Date: 20080122
  Receipt Date: 20080115
  Transmission Date: 20080703
  Serious: Yes (Hospitalization)
  Sender: FDA-Public Use
  Company Number: NL-JNJFOC-20080103641

PATIENT
  Sex: Female

DRUGS (6)
  1. REMICADE [Suspect]
     Dosage: 30 INFUSIONS, LAST INFUSION 21NOV07
     Route: 042
  2. REMICADE [Suspect]
     Dosage: TWO INFUSIONS
     Route: 042
  3. REMICADE [Suspect]
     Indication: CROHN'S DISEASE
     Dosage: TWO INFUSIONS
     Route: 042
  4. PREDNISONE [Concomitant]
  5. SALAZOPYRIN [Concomitant]
  6. IMURAN [Concomitant]

REACTIONS (2)
  - BASAL CELL CARCINOMA [None]
  - FIBROMA [None]
